FAERS Safety Report 8539629-8 (Version None)
Quarter: 2012Q3

REPORT INFORMATION
  Report Type: 
  Country: None (occurrence: None)
  Receive Date: 20120726
  Receipt Date: 20120716
  Transmission Date: 20120928
  Serious: Yes (Hospitalization, Other)
  Sender: FDA-Public Use
  Company Number: FR-JNJFOC-20120518140

PATIENT
  Age: 72 Year
  Sex: Male

DRUGS (4)
  1. ZYTIGA [Suspect]
     Route: 065
     Dates: start: 20120416
  2. ZYTIGA [Suspect]
     Indication: PROSTATE CANCER
     Route: 065
     Dates: end: 20120626
  3. ANTICOAGULANTS [Concomitant]
     Indication: PRODUCT USED FOR UNKNOWN INDICATION
  4. PREDNISONE [Concomitant]
     Indication: PROSTATE CANCER

REACTIONS (5)
  - DISEASE PROGRESSION [None]
  - ACUTE CORONARY SYNDROME [None]
  - INAPPROPRIATE SCHEDULE OF DRUG ADMINISTRATION [None]
  - OEDEMA PERIPHERAL [None]
  - DRUG INEFFECTIVE [None]
